FAERS Safety Report 7047504-3 (Version None)
Quarter: 2010Q4

REPORT INFORMATION
  Report Type: 
  Country: None (occurrence: None)
  Receive Date: 20101015
  Receipt Date: 20101007
  Transmission Date: 20110411
  Serious: Yes (Hospitalization, Other)
  Sender: FDA-Public Use
  Company Number: US-PFIZER INC-2009153873

PATIENT
  Sex: Female
  Weight: 68.027 kg

DRUGS (7)
  1. LIPITOR [Suspect]
     Indication: BLOOD CHOLESTEROL INCREASED
     Dosage: 20 MG, 1X/DAY
     Dates: start: 20081001
  2. LIPITOR [Suspect]
     Dosage: 10 MG, 1X/DAY
     Dates: start: 20090101
  3. LIPITOR [Suspect]
     Dosage: 20 MG, 1X/DAY
     Dates: start: 20100901
  4. LYRICA [Suspect]
     Indication: NEUROPATHY PERIPHERAL
     Dosage: 75 MG, 2X/DAY
     Dates: start: 20090101
  5. AZITHROMYCIN [Suspect]
     Indication: NASOPHARYNGITIS
     Dosage: 500/250MG
     Dates: end: 20081201
  6. AZITHROMYCIN [Suspect]
     Indication: LOWER RESPIRATORY TRACT INFECTION
  7. ACETYLSALICYLIC ACID [Concomitant]
     Dosage: UNK

REACTIONS (10)
  - ASTHENIA [None]
  - BLOOD CHOLESTEROL INCREASED [None]
  - DIZZINESS [None]
  - HEART RATE DECREASED [None]
  - INTERVERTEBRAL DISC PROTRUSION [None]
  - LOW DENSITY LIPOPROTEIN INCREASED [None]
  - LOWER RESPIRATORY TRACT INFECTION VIRAL [None]
  - MUSCULAR WEAKNESS [None]
  - NASOPHARYNGITIS [None]
  - NEUROPATHY PERIPHERAL [None]
